FAERS Safety Report 19006536 (Version 1)
Quarter: 2021Q1

REPORT INFORMATION
  Report Type: Spontaneous
  Country: US (occurrence: US)
  Receive Date: 20210312
  Receipt Date: 20210312
  Transmission Date: 20210420
  Serious: No
  Sender: FDA-Public Use
  Company Number: None

PATIENT
  Age: 68 Year
  Sex: Male
  Weight: 120 kg

DRUGS (1)
  1. BAMLANIVIMAB. [Suspect]
     Active Substance: BAMLANIVIMAB
     Indication: COVID-19
     Dosage: ?          OTHER FREQUENCY:ONCE;?
     Route: 042
     Dates: start: 20210304, end: 20210304

REACTIONS (8)
  - Tongue discomfort [None]
  - Lip discolouration [None]
  - Tongue erythema [None]
  - Tongue eruption [None]
  - Skin discolouration [None]
  - Tongue discolouration [None]
  - Taste disorder [None]
  - Skin exfoliation [None]

NARRATIVE: CASE EVENT DATE: 20210305
